FAERS Safety Report 7153504-5 (Version None)
Quarter: 2010Q4

REPORT INFORMATION
  Report Type: 
  Country: None (occurrence: None)
  Receive Date: 20101213
  Receipt Date: 20101207
  Transmission Date: 20110411
  Serious: Yes (Other)
  Sender: FDA-Public Use
  Company Number: B0688080A

PATIENT
  Sex: Female
  Weight: 48 kg

DRUGS (17)
  1. TYKERB [Suspect]
     Indication: BREAST CANCER
     Dosage: 1250MG PER DAY
     Route: 048
     Dates: start: 20100325, end: 20100427
  2. TYKERB [Suspect]
     Dosage: 1000MG PER DAY
     Route: 048
     Dates: start: 20100607
  3. XELODA [Suspect]
     Indication: BREAST CANCER
     Dosage: 2400MG PER DAY
     Route: 048
     Dates: start: 20100325, end: 20100415
  4. XELODA [Suspect]
     Dosage: 1800MG PER DAY
     Route: 048
     Dates: start: 20100607
  5. LETROZOLE [Concomitant]
     Indication: BREAST CANCER
     Dosage: 2.5MG PER DAY
     Route: 048
     Dates: start: 20081113
  6. PYDOXAL [Concomitant]
     Dosage: 30MG PER DAY
     Route: 048
     Dates: start: 20091029
  7. UREPEARL [Concomitant]
     Route: 061
     Dates: start: 20091029
  8. MYSER [Concomitant]
     Route: 061
     Dates: start: 20091126
  9. MOBIC [Concomitant]
     Indication: NEUROPATHY PERIPHERAL
     Dosage: 10MG PER DAY
     Route: 048
     Dates: start: 20090326
  10. SELBEX [Concomitant]
     Indication: ABDOMINAL DISCOMFORT
     Dosage: 150MG PER DAY
     Route: 048
     Dates: start: 20081120
  11. DEPAS [Concomitant]
     Indication: ANXIETY
     Route: 048
     Dates: start: 20081211, end: 20100805
  12. DOMPERIDONE [Concomitant]
     Indication: ABDOMINAL DISCOMFORT
     Dosage: 30MG PER DAY
     Route: 048
     Dates: start: 20081204, end: 20100408
  13. FASTIC [Concomitant]
     Indication: DIABETES MELLITUS
     Dosage: 270MG PER DAY
     Route: 048
     Dates: start: 20081113
  14. ASPENON [Concomitant]
     Indication: SUPRAVENTRICULAR TACHYCARDIA
     Dosage: 40MG PER DAY
     Route: 048
     Dates: start: 20081113
  15. VERAPAMIL HCL [Concomitant]
     Indication: SUPRAVENTRICULAR TACHYCARDIA
     Dosage: 80MG PER DAY
     Route: 048
     Dates: start: 20081113
  16. NORVASC [Concomitant]
     Indication: HYPERTENSION
     Dosage: 5MG PER DAY
     Route: 048
     Dates: start: 20081113
  17. MICARDIS [Concomitant]
     Indication: HYPERTENSION
     Dosage: 40MG PER DAY
     Route: 048
     Dates: start: 20081113

REACTIONS (3)
  - HYPOAESTHESIA [None]
  - NEUROPATHY PERIPHERAL [None]
  - PARONYCHIA [None]
